FAERS Safety Report 4749939-8 (Version None)
Quarter: 2005Q3

REPORT INFORMATION
  Report Type: 
  Country: None (occurrence: None)
  Receive Date: 20050822
  Receipt Date: 20050309
  Transmission Date: 20060218
  Serious: Yes (Hospitalization, Disabling)
  Sender: FDA-Public Use
  Company Number: US-MERCK-0503USA01720

PATIENT
  Age: 49 Year
  Sex: Male
  Weight: 66 kg

DRUGS (6)
  1. VIOXX [Suspect]
     Indication: BACK PAIN
     Route: 048
     Dates: start: 19990101, end: 20000501
  2. LIPITOR [Concomitant]
     Route: 065
     Dates: start: 19960101
  3. ECOTRIN [Concomitant]
     Route: 065
     Dates: start: 19960101
  4. TYLENOL W/ CODEINE NO. 3 [Concomitant]
     Route: 065
     Dates: start: 19990201
  5. ZOCOR [Concomitant]
     Route: 065
     Dates: start: 19960101
  6. CRESTOR [Concomitant]
     Route: 065
     Dates: start: 20000101

REACTIONS (4)
  - BENIGN PROSTATIC HYPERPLASIA [None]
  - CORONARY ARTERY DISEASE [None]
  - MYOCARDIAL INFARCTION [None]
  - PAIN [None]
